FAERS Safety Report 8525226-7 (Version None)
Quarter: 2012Q3

REPORT INFORMATION
  Report Type: 
  Country: None (occurrence: None)
  Receive Date: 20120720
  Receipt Date: 20120716
  Transmission Date: 20120928
  Serious: Yes (Hospitalization)
  Sender: FDA-Public Use
  Company Number: PHHY2012GR060530

PATIENT
  Age: 61 Year
  Sex: Female

DRUGS (5)
  1. METFORMIN HYDROCHLORIDE [Suspect]
     Dosage: 1700 MG, DAILY
  2. GLIMEPIRIDE [Concomitant]
  3. HYDROCHLOROTHIAZIDE [Concomitant]
  4. ENALAPRIL MALEATE [Concomitant]
  5. DICLOFENAC [Suspect]
     Indication: JOINT INJURY
     Dosage: 75 MG, DAILY
     Route: 048

REACTIONS (14)
  - KUSSMAUL RESPIRATION [None]
  - ABDOMINAL DISCOMFORT [None]
  - DECREASED APPETITE [None]
  - METABOLIC ACIDOSIS [None]
  - DISORIENTATION [None]
  - HYPERKALAEMIA [None]
  - ABDOMINAL PAIN [None]
  - BLOOD LACTIC ACID INCREASED [None]
  - SOMNOLENCE [None]
  - NAUSEA [None]
  - BLOOD PRESSURE DECREASED [None]
  - OLIGURIA [None]
  - VOMITING [None]
  - RENAL IMPAIRMENT [None]
